FAERS Safety Report 14348234 (Version 1)
Quarter: 2018Q1

REPORT INFORMATION
  Report Type: Spontaneous
  Country: US (occurrence: US)
  Receive Date: 20180103
  Receipt Date: 20180103
  Transmission Date: 20180509
  Serious: No
  Sender: FDA-Public Use
  Company Number: US-BAUSCH-BL-2017-030464

PATIENT
  Sex: Female

DRUGS (1)
  1. XENAZINE [Suspect]
     Active Substance: TETRABENAZINE
     Indication: CHOREA
     Dosage: FOUR TABLETS (12.5MG PER TABLET) EVERYDAY
     Route: 048
     Dates: start: 201705

REACTIONS (2)
  - Treatment noncompliance [Unknown]
  - Amnesia [Unknown]

NARRATIVE: CASE EVENT DATE: 2017
